FAERS Safety Report 8992889 (Version 2)
Quarter: 2013Q1

REPORT INFORMATION
  Report Type: Spontaneous
  Country: US (occurrence: US)
  Receive Date: 20130102
  Receipt Date: 20130102
  Transmission Date: 20140127
  Serious: Yes (Hospitalization, Other)
  Sender: FDA-Public Use
  Company Number: US-JNJFOC-20121213698

PATIENT
  Age: 73 None
  Sex: Female
  Weight: 59.42 kg

DRUGS (3)
  1. DURAGESIC [Suspect]
     Indication: PAIN
     Route: 062
     Dates: start: 20121215, end: 20121218
  2. DURAGESIC [Suspect]
     Indication: PAIN
     Route: 062
     Dates: start: 20121204, end: 20121215
  3. DURAGESIC [Suspect]
     Indication: PAIN
     Route: 062
     Dates: start: 201208, end: 20121107

REACTIONS (8)
  - Abdominal pain [Recovered/Resolved]
  - Gastrointestinal disorder [Recovered/Resolved]
  - Escherichia infection [Recovered/Resolved]
  - Nausea [Not Recovered/Not Resolved]
  - Disorientation [Not Recovered/Not Resolved]
  - Confusional state [Not Recovered/Not Resolved]
  - Pain [Recovered/Resolved]
  - Drug effect increased [Not Recovered/Not Resolved]
